FAERS Safety Report 4574720-2 (Version None)
Quarter: 2005Q1

REPORT INFORMATION
  Report Type: 
  Country: None (occurrence: None)
  Receive Date: 20050208
  Receipt Date: 20040708
  Transmission Date: 20050727
  Serious: No
  Sender: FDA-Public Use
  Company Number: US-GLAXOSMITHKLINE-A0517428A

PATIENT
  Age: 49 Year
  Sex: Female

DRUGS (3)
  1. PAXIL [Suspect]
     Indication: DEPRESSION
     Dosage: 20MG PER DAY
     Route: 048
     Dates: start: 19960101
  2. FLONASE [Concomitant]
  3. ZYRTEC [Concomitant]

REACTIONS (2)
  - DRUG INEFFECTIVE [None]
  - IRRITABILITY [None]
